FAERS Safety Report 16575645 (Version 2)
Quarter: 2020Q1

REPORT INFORMATION
  Report Type: Other
  Country: AT (occurrence: AT)
  Receive Date: 20190716
  Receipt Date: 20200205
  Transmission Date: 20200409
  Serious: Yes (Hospitalization, Other)
  Sender: FDA-Public Use
  Company Number: AT-CELLTRION INC.-2019AT022540

PATIENT

DRUGS (13)
  1. MIRANAX [NAPROXEN] [Concomitant]
     Dosage: UNK
     Route: 065
     Dates: start: 20161115
  2. MEXALEN [Concomitant]
     Active Substance: ACETAMINOPHEN
     Indication: METASTASES TO CENTRAL NERVOUS SYSTEM
     Dosage: UNK
     Route: 065
     Dates: start: 20170609
  3. ZOFRAN [Concomitant]
     Active Substance: ONDANSETRON HYDROCHLORIDE
     Dosage: UNK
     Route: 065
     Dates: start: 20161115
  4. TRASTUZUMAB (UNKNOWN) [Suspect]
     Active Substance: TRASTUZUMAB
     Indication: BREAST CANCER
     Dosage: 600 MG, EVERY 3 WEEKS
     Route: 041
     Dates: start: 20180503
  5. LETROZOLE. [Suspect]
     Active Substance: LETROZOLE
     Indication: BREAST CANCER
     Dosage: O.D. - ONCE DAILY
     Route: 048
     Dates: start: 20180426
  6. TRASTUZUMAB EMTANSINE [Suspect]
     Active Substance: ADO-TRASTUZUMAB EMTANSINE
     Indication: HER-2 POSITIVE BREAST CANCER
     Dosage: 3.6 MG/KG, Q4WEEKS; MOST RECENT DOSE PRIOR TO THE EVENT: 21/AUG/2017; MOST RECENT DOSE PRIOR TO THE
     Route: 042
     Dates: start: 20161114
  7. PERTUZUMAB. [Suspect]
     Active Substance: PERTUZUMAB
     Indication: BREAST CANCER
     Dosage: 420 MG, EVERY 3 WEEKS; MOST RECENT DOSE PRIOR TO THE EVENT: 22/NOV/2018
     Route: 042
     Dates: start: 201811
  8. PARKEMED [Concomitant]
     Active Substance: MEFENAMIC ACID
     Dosage: UNK
     Route: 065
     Dates: start: 20181113, end: 20181120
  9. FORTECORTIN [DEXAMETHASONE] [Concomitant]
     Active Substance: DEXAMETHASONE
     Dosage: UNK
     Route: 065
     Dates: start: 20170330
  10. PARKEMED [Concomitant]
     Active Substance: MEFENAMIC ACID
     Indication: DENTAL FISTULA
     Dosage: UNK
     Route: 065
     Dates: start: 20170315
  11. EMEND [Concomitant]
     Active Substance: APREPITANT
     Dosage: UNK
     Route: 065
     Dates: start: 20161115
  12. XGEVA [Suspect]
     Active Substance: DENOSUMAB
     Indication: HER-2 POSITIVE BREAST CANCER
     Dosage: 120 MG (MOST RECENT DOSE OF XGVEGA 19/MAR/2019, 29/NOV/2018)
     Route: 058
     Dates: start: 201611
  13. VENLAFAXINE [Concomitant]
     Active Substance: VENLAFAXINE HYDROCHLORIDE
     Indication: NIGHT SWEATS
     Dosage: UNK
     Route: 065
     Dates: start: 20190228

REACTIONS (8)
  - Chills [Recovered/Resolved]
  - Spinal pain [Recovered/Resolved]
  - Night sweats [Unknown]
  - Vision blurred [Recovered/Resolved]
  - Dental fistula [Recovered/Resolved]
  - Spinal pain [Not Recovered/Not Resolved]
  - Dental fistula [Unknown]
  - Overdose [Unknown]

NARRATIVE: CASE EVENT DATE: 20180503
